FAERS Safety Report 6056796-9 (Version None)
Quarter: 2009Q1

REPORT INFORMATION
  Report Type: 
  Country: None (occurrence: None)
  Receive Date: 20090129
  Receipt Date: 20090120
  Transmission Date: 20090719
  Serious: Yes (Other)
  Sender: FDA-Public Use
  Company Number: US-AVENTIS-200910298EU

PATIENT
  Age: 81 Year
  Sex: Female

DRUGS (19)
  1. ALUMINIUM OH/MAGNESIUM TRISILICATE [Suspect]
     Indication: GASTROOESOPHAGEAL REFLUX DISEASE
     Route: 048
  2. FLUTICASONE PROPIONATE W/SALMETEROL [Suspect]
     Indication: ASTHMA
     Dosage: DOSE: 2 PUFFS
     Route: 055
  3. SALBUTAMOL SULFATE [Suspect]
     Indication: ASTHMA
     Route: 055
  4. CARDIOVASCULAR SYSTEM DRUGS [Suspect]
     Indication: HYPERTENSION
     Route: 048
  5. ALENDRONIC ACID [Suspect]
     Indication: DRUG USE FOR UNKNOWN INDICATION
     Route: 048
  6. AMITRIPTYLINE HCL [Suspect]
     Route: 048
  7. ASPIRIN [Suspect]
     Indication: VENIPUNCTURE
     Route: 048
  8. ATENOLOL [Suspect]
     Indication: HYPERTENSION
     Route: 048
  9. ATORVASTATIN [Suspect]
     Route: 048
  10. CALCIUM CARBONATE [Suspect]
     Indication: DRUG USE FOR UNKNOWN INDICATION
     Dosage: DOSE: 2 TABS
     Route: 048
  11. ACETAMINOPHEN W/ CODEINE [Suspect]
     Indication: DRUG USE FOR UNKNOWN INDICATION
     Dosage: DOSE: 2 TABS
     Route: 048
  12. GABAPENTIN [Suspect]
     Indication: DRUG USE FOR UNKNOWN INDICATION
     Route: 048
  13. NITROGLYCERIN [Suspect]
     Indication: CHEST PAIN
     Dosage: DOSE: 1 SPRAY
     Route: 048
  14. ISOSORBIDE DINITRATE [Suspect]
     Indication: DRUG USE FOR UNKNOWN INDICATION
     Route: 048
  15. UNKNOWN DRUG [Suspect]
     Indication: DRUG USE FOR UNKNOWN INDICATION
     Route: 048
  16. LANSOPRAZOLE [Suspect]
     Indication: GASTROOESOPHAGEAL REFLUX DISEASE
     Dosage: DOSE: UNK
  17. PREDNISOLONE [Suspect]
     Indication: ARTHRITIS
     Route: 048
  18. TIOTROPIUM [Suspect]
     Indication: CHRONIC OBSTRUCTIVE PULMONARY DISEASE
     Route: 055
  19. MORPHINE [Suspect]
     Indication: DRUG USE FOR UNKNOWN INDICATION
     Dosage: DOSE: UNK
     Route: 062

REACTIONS (5)
  - DYSPHONIA [None]
  - DYSPNOEA [None]
  - FEELING ABNORMAL [None]
  - OEDEMA PERIPHERAL [None]
  - OROPHARYNGEAL PAIN [None]
